FAERS Safety Report 6549310-2 (Version None)
Quarter: 2010Q1

REPORT INFORMATION
  Report Type: 
  Country: None (occurrence: None)
  Receive Date: 20100125
  Receipt Date: 20100111
  Transmission Date: 20100710
  Serious: Yes (Hospitalization)
  Sender: FDA-Public Use
  Company Number: PHHY2010CN02142

PATIENT
  Age: 66 Year
  Sex: Female

DRUGS (2)
  1. CARBAMAZEPINE [Suspect]
     Indication: HYPERTENSION
     Dosage: UNK
     Route: 048
  2. ANTIHYPERTENSIVE DRUGS [Concomitant]
     Dosage: UNK

REACTIONS (13)
  - BODY TEMPERATURE INCREASED [None]
  - COMA [None]
  - DERMATITIS EXFOLIATIVE [None]
  - ERYTHEMA [None]
  - HEART RATE INCREASED [None]
  - HEART SOUNDS ABNORMAL [None]
  - HYPOVENTILATION [None]
  - PRURITUS [None]
  - PULSE PRESSURE DECREASED [None]
  - RASH [None]
  - RASH MACULO-PAPULAR [None]
  - RASH PAPULAR [None]
  - SKIN EXFOLIATION [None]
